FAERS Safety Report 7522629-4 (Version None)
Quarter: 2011Q2

REPORT INFORMATION
  Report Type: 
  Country: None (occurrence: None)
  Receive Date: 20110525
  Receipt Date: 20110523
  Transmission Date: 20111010
  Serious: Yes (Hospitalization)
  Sender: FDA-Public Use
  Company Number: ABR_00029_2011

PATIENT
  Sex: Male

DRUGS (2)
  1. NITROSTAT [Concomitant]
  2. NITROLINGUAL [Suspect]
     Indication: CHEST PAIN
     Dosage: DF

REACTIONS (3)
  - PRODUCT QUALITY ISSUE [None]
  - DEVICE FAILURE [None]
  - DRUG INEFFECTIVE [None]
